FAERS Safety Report 10007468 (Version 1)
Quarter: 2014Q1

REPORT INFORMATION
  Report Type: Report from Study
  Country: US (occurrence: US)
  Receive Date: 20140313
  Receipt Date: 20140313
  Transmission Date: 20141002
  Serious: Yes (Hospitalization)
  Sender: FDA-Public Use
  Company Number: US-SA-2014SA032029

PATIENT
  Age: 72 Year
  Sex: Female

DRUGS (11)
  1. DRONEDARONE [Suspect]
     Indication: PRODUCT USED FOR UNKNOWN INDICATION
     Route: 065
  2. DABIGATRAN [Interacting]
     Indication: PRODUCT USED FOR UNKNOWN INDICATION
     Route: 065
  3. WELCHOL [Concomitant]
  4. ASPIRIN [Concomitant]
  5. VALSARTAN [Concomitant]
  6. AMOXICILLIN [Concomitant]
  7. IMDUR [Concomitant]
  8. ZOCOR [Concomitant]
  9. METOPROLOL [Concomitant]
  10. METFORMIN [Concomitant]
  11. CALTRATE [Concomitant]

REACTIONS (2)
  - Gastrointestinal haemorrhage [Unknown]
  - Drug interaction [Unknown]
